FAERS Safety Report 14811643 (Version 3)
Quarter: 2018Q2

REPORT INFORMATION
  Report Type: Report from Study
  Country: US (occurrence: US)
  Receive Date: 20180425
  Receipt Date: 20180622
  Transmission Date: 20180711
  Serious: Yes (Other)
  Sender: FDA-Public Use
  Company Number: US-AMGEN-USASL2018039127

PATIENT
  Age: 67 Year
  Sex: Female

DRUGS (3)
  1. REPATHA [Suspect]
     Active Substance: EVOLOCUMAB
     Indication: HYPERLIPIDAEMIA
     Dosage: 140 MG, Q2WK
     Route: 065
  2. REPATHA [Suspect]
     Active Substance: EVOLOCUMAB
     Indication: BLOOD CHOLESTEROL INCREASED
  3. REPATHA [Suspect]
     Active Substance: EVOLOCUMAB
     Indication: BLOOD TRIGLYCERIDES INCREASED

REACTIONS (14)
  - Flushing [Unknown]
  - Disturbance in attention [Unknown]
  - Dysgeusia [Unknown]
  - Rhinorrhoea [Unknown]
  - Dizziness [Unknown]
  - Somnolence [Unknown]
  - Upper-airway cough syndrome [Unknown]
  - Fatigue [Recovering/Resolving]
  - Injection site haemorrhage [Unknown]
  - Nasopharyngitis [Unknown]
  - Asthenia [Recovering/Resolving]
  - Palpitations [Unknown]
  - Lethargy [Unknown]
  - Cough [Not Recovered/Not Resolved]

NARRATIVE: CASE EVENT DATE: 2018
